FAERS Safety Report 4687468-0 (Version None)
Quarter: 2005Q2

REPORT INFORMATION
  Report Type: 
  Country: None (occurrence: None)
  Receive Date: 20050609
  Receipt Date: 20050609
  Transmission Date: 20051028
  Serious: Yes (Other)
  Sender: FDA-Public Use
  Company Number: None

PATIENT
  Sex: Male
  Weight: 78 kg

DRUGS (4)
  1. IRINOTECAN [Suspect]
     Indication: COLORECTAL CANCER
     Dates: start: 20041115
  2. FLUOROURACIL [Suspect]
     Indication: COLORECTAL CANCER
     Dates: start: 20041115
  3. OXALIPLATIN [Suspect]
     Indication: COLORECTAL CANCER
     Dates: start: 20041115
  4. CETUXIMAB [Suspect]
     Indication: COLORECTAL CANCER
     Dates: start: 20041115

REACTIONS (4)
  - ABDOMINAL PAIN [None]
  - NEOPLASM PROGRESSION [None]
  - OBSTRUCTIVE UROPATHY [None]
  - PELVIC MASS [None]
